FAERS Safety Report 5278620-4 (Version None)
Quarter: 2007Q1

REPORT INFORMATION
  Report Type: 
  Country: None (occurrence: None)
  Receive Date: 20070328
  Receipt Date: 20070323
  Transmission Date: 20070707
  Serious: Yes (Other)
  Sender: FDA-Public Use
  Company Number: DE-GLAXOSMITHKLINE-D0052601A

PATIENT
  Age: 67 Year
  Sex: Female

DRUGS (3)
  1. AVANDIA [Suspect]
     Dosage: 4MG PER DAY
     Route: 048
     Dates: start: 20010222, end: 20070313
  2. MANINIL [Concomitant]
     Dosage: 1MG PER DAY
     Route: 048
     Dates: start: 20000101
  3. INEGY [Concomitant]
     Dosage: 50MG PER DAY
     Route: 048
     Dates: start: 20050419

REACTIONS (3)
  - FALL [None]
  - FOREARM FRACTURE [None]
  - HAND FRACTURE [None]
